FAERS Safety Report 8155750-0 (Version None)
Quarter: 2012Q1

REPORT INFORMATION
  Report Type: 
  Country: None (occurrence: None)
  Receive Date: 20120222
  Receipt Date: 20120217
  Transmission Date: 20120608
  Serious: Yes (Life-Threatening, Other)
  Sender: FDA-Public Use
  Company Number: FR-ABBOTT-12P-056-0905709-00

PATIENT
  Sex: Male

DRUGS (6)
  1. NOVORAPID [Suspect]
     Indication: DIABETES MELLITUS
     Route: 058
  2. LANTUS [Suspect]
     Indication: DIABETES MELLITUS
     Route: 058
  3. ACTIQ [Suspect]
     Indication: PAIN
     Dosage: ROUTE: BUC
     Dates: end: 20100330
  4. CREON 25000 IU [Suspect]
     Indication: PANCREATITIS
     Dosage: DAILY DOSE: 3 DOSAGE FORMS
     Route: 048
  5. DURAGESIC-100 [Suspect]
     Indication: PAIN
     Route: 062
     Dates: end: 20100330
  6. ASPIRIN [Suspect]
     Indication: ANTIPLATELET THERAPY
     Route: 048

REACTIONS (3)
  - COMA [None]
  - LUNG DISORDER [None]
  - OVERDOSE [None]
